FAERS Safety Report 23037995 (Version 1)
Quarter: 2023Q4

REPORT INFORMATION
  Report Type: Spontaneous
  Country: US (occurrence: None)
  Receive Date: 20231005
  Receipt Date: 20231005
  Transmission Date: 20240110
  Serious: Yes (Other)
  Sender: FDA-Public Use
  Company Number: None

PATIENT
  Age: 79 Year
  Sex: Female
  Weight: 88.2 kg

DRUGS (3)
  1. ZEJULA [Suspect]
     Active Substance: NIRAPARIB
     Dosage: FREQUENCY : DAILY;?
     Route: 048
     Dates: start: 20230609, end: 20231005
  2. ZEJULA [Concomitant]
     Active Substance: NIRAPARIB
     Dates: start: 20230608, end: 20231005
  3. zejula 200 mg [Concomitant]
     Dates: start: 20230609, end: 20231005

REACTIONS (2)
  - Red blood cell count decreased [None]
  - Carbohydrate antigen 125 increased [None]

NARRATIVE: CASE EVENT DATE: 20231005
